FAERS Safety Report 26130219 (Version 1)
Quarter: 2025Q4

REPORT INFORMATION
  Report Type: Spontaneous
  Country: US (occurrence: US)
  Receive Date: 20251208
  Receipt Date: 20251208
  Transmission Date: 20260117
  Serious: No
  Sender: ARS PHARMACEUTICALS OPERATIONS, INC.
  Company Number: US-ARS PHARMACEUTICALS OPERATIONS, INC.-2025ARP00112

PATIENT
  Age: 11 Year
  Sex: Male
  Weight: 46.712 kg

DRUGS (3)
  1. NEFFY [Suspect]
     Active Substance: EPINEPHRINE
     Indication: Anaphylactic reaction
     Dosage: 2 MG, ONCE
     Route: 045
     Dates: start: 20250818, end: 20250818
  2. UNSPECIFIED ORAL IMMUNOTHERAPY [Concomitant]
  3. ALBUTEROL [Concomitant]
     Active Substance: ALBUTEROL

REACTIONS (4)
  - Energy increased [Recovered/Resolved]
  - Tremor [Recovered/Resolved]
  - Device breakage [Unknown]
  - Device physical property issue [Unknown]

NARRATIVE: CASE EVENT DATE: 20250818
